FAERS Safety Report 8301828-8 (Version None)
Quarter: 2012Q2

REPORT INFORMATION
  Report Type: 
  Country: None (occurrence: None)
  Receive Date: 20120417
  Receipt Date: 20120405
  Transmission Date: 20120825
  Serious: Yes (Hospitalization)
  Sender: FDA-Public Use
  Company Number: JPI-P-020767

PATIENT
  Age: 52 Year
  Sex: Female

DRUGS (4)
  1. MOXIFLOXACIN [Suspect]
     Indication: EAR INFECTION
     Dates: start: 20120307, end: 20120307
  2. XYREM [Suspect]
     Indication: SLEEP APNOEA SYNDROME
     Dosage: ORAL, 9 GM (4.5 GM, 2 IN 1 D) ORAL
     Route: 048
     Dates: end: 20120317
  3. XYREM [Suspect]
     Indication: SLEEP APNOEA SYNDROME
     Dosage: ORAL, 9 GM (4.5 GM, 2 IN 1 D) ORAL
     Route: 048
     Dates: start: 20060810
  4. MULTIPLE UNSPECIFIED MEDICATIONS [Concomitant]

REACTIONS (5)
  - CLOSTRIDIUM DIFFICILE COLITIS [None]
  - FALL [None]
  - EAR INFECTION [None]
  - LIGAMENT RUPTURE [None]
  - MENISCUS LESION [None]
